FAERS Safety Report 6060681-6 (Version None)
Quarter: 2009Q1

REPORT INFORMATION
  Report Type: 
  Country: None (occurrence: None)
  Receive Date: 20090202
  Receipt Date: 20090121
  Transmission Date: 20090719
  Serious: Yes (Hospitalization)
  Sender: FDA-Public Use
  Company Number: SE-PFIZER INC-2009162674

PATIENT

DRUGS (14)
  1. BLINDED *PLACEBO [Suspect]
     Indication: CARDIAC FAILURE
     Dosage: UNK
     Route: 048
     Dates: start: 20081210
  2. EPLERENONE [Suspect]
     Indication: CARDIAC FAILURE
     Dosage: UNK
     Route: 048
     Dates: start: 20081210
  3. OMEPRAZOLE [Concomitant]
     Dosage: UNK
     Route: 048
     Dates: start: 20080722
  4. LACTULOSE [Concomitant]
     Dosage: UNK
     Route: 048
     Dates: start: 20080728
  5. WARFARIN [Concomitant]
     Dosage: UNK
     Route: 048
     Dates: start: 20080925
  6. FUROSEMIDE [Concomitant]
     Dosage: UNK
     Route: 048
     Dates: start: 20080925
  7. METOPROLOL SUCCINATE [Concomitant]
     Dosage: UNK
     Route: 048
     Dates: start: 20080704
  8. CANDESARTAN [Concomitant]
     Dosage: UNK
     Route: 048
     Dates: start: 20081128
  9. ENALAPRIL MALEATE [Concomitant]
     Dosage: UNK
     Route: 048
     Dates: start: 20080704
  10. SIMVASTATIN [Concomitant]
     Dosage: UNK
     Route: 048
     Dates: start: 20080704
  11. CITALOPRAM [Concomitant]
     Dosage: UNK
     Route: 048
     Dates: start: 20080728
  12. GLYCERYL TRINITRATE [Concomitant]
     Dosage: UNK
     Route: 048
     Dates: start: 20080716
  13. PARACETAMOL [Concomitant]
     Dosage: UNK
     Route: 048
     Dates: start: 20080818
  14. CEFOTAXIME [Concomitant]
     Route: 048
     Dates: start: 20090107, end: 20090119

REACTIONS (1)
  - BALANCE DISORDER [None]
